FAERS Safety Report 24266355 (Version 1)
Quarter: 2024Q3

REPORT INFORMATION
  Report Type: Spontaneous
  Country: FR (occurrence: FR)
  Receive Date: 20240830
  Receipt Date: 20240830
  Transmission Date: 20241017
  Serious: Yes (Hospitalization)
  Sender: GE HEALTHCARE
  Company Number: None

PATIENT
  Age: 17 Year
  Sex: Male

DRUGS (7)
  1. CLARISCAN [Suspect]
     Active Substance: GADOTERATE MEGLUMINE
     Indication: Magnetic resonance imaging
     Dosage: 12 ML, TOTAL
     Route: 042
     Dates: start: 20240318, end: 20240318
  2. IOBITRIDOL [Suspect]
     Active Substance: IOBITRIDOL
     Indication: Magnetic resonance imaging
     Dosage: 80 ML, TOTAL
     Route: 042
     Dates: start: 20240320, end: 20240320
  3. ACYCLOVIR [Suspect]
     Active Substance: ACYCLOVIR
     Indication: Encephalitis
     Dosage: 2400 MG, TOTAL
     Route: 042
     Dates: start: 20240319, end: 20240320
  4. Spasfon [Concomitant]
  5. ACETAMINOPHEN [Concomitant]
     Active Substance: ACETAMINOPHEN
  6. LEVETIRACETAM [Concomitant]
     Active Substance: LEVETIRACETAM
  7. MOVICOL [Concomitant]
     Active Substance: POLYETHYLENE GLYCOL 3350\POTASSIUM CHLORIDE\SODIUM BICARBONATE\SODIUM CHLORIDE

REACTIONS (1)
  - Acute kidney injury [Recovered/Resolved]

NARRATIVE: CASE EVENT DATE: 20240321
